FAERS Safety Report 23470686 (Version 2)
Quarter: 2024Q2

REPORT INFORMATION
  Report Type: Spontaneous
  Country: FR (occurrence: FR)
  Receive Date: 20240202
  Receipt Date: 20240410
  Transmission Date: 20240715
  Serious: Yes (Hospitalization)
  Sender: FDA-Public Use
  Company Number: FR-SUN PHARMACEUTICAL INDUSTRIES LTD-2024RR-429887

PATIENT
  Age: 17 Year
  Sex: Male

DRUGS (3)
  1. SERTRALINE [Suspect]
     Active Substance: SERTRALINE HYDROCHLORIDE
     Indication: Depression
     Dosage: 150 MILLIGRAM, DAILY
     Route: 048
  2. CYAMEMAZINE [Suspect]
     Active Substance: CYAMEMAZINE
     Indication: Depression
     Dosage: 25 MILLIGRAM, DAILY
     Route: 048
  3. MIANSERIN [Suspect]
     Active Substance: MIANSERIN
     Indication: Depression
     Dosage: 10 MILLIGRAM, DAILY
     Route: 048
     Dates: start: 20231003, end: 20231003

REACTIONS (1)
  - Malaise [Recovering/Resolving]

NARRATIVE: CASE EVENT DATE: 20231004
